FAERS Safety Report 20247317 (Version 1)
Quarter: 2021Q4

REPORT INFORMATION
  Report Type: Spontaneous
  Country: US (occurrence: None)
  Receive Date: 20211229
  Receipt Date: 20211229
  Transmission Date: 20220303
  Serious: Yes (Death, Hospitalization)
  Sender: FDA-Public Use
  Company Number: None

PATIENT
  Age: 60 Year
  Sex: Female
  Weight: 127.9 kg

DRUGS (1)
  1. LUSPATERCEPT [Suspect]
     Active Substance: LUSPATERCEPT
     Dosage: FREQUENCY : ONCE;?
     Route: 058
     Dates: start: 20210428, end: 20210428

REACTIONS (7)
  - Bone pain [None]
  - Nausea [None]
  - Vomiting [None]
  - Acute chest syndrome [None]
  - Fat embolism syndrome [None]
  - Bone marrow necrosis [None]
  - Multiple organ dysfunction syndrome [None]

NARRATIVE: CASE EVENT DATE: 20210430
